FAERS Safety Report 18946542 (Version 4)
Quarter: 2021Q2

REPORT INFORMATION
  Report Type: Report from Study
  Country: AR (occurrence: AR)
  Receive Date: 20210226
  Receipt Date: 20210525
  Transmission Date: 20210717
  Serious: Yes (Hospitalization)
  Sender: FDA-Public Use
  Company Number: AR-TAKEDA-2020TUS058932

PATIENT
  Age: 70 Year
  Sex: Male

DRUGS (1)
  1. PONATINIB [Suspect]
     Active Substance: PONATINIB
     Indication: CHRONIC MYELOID LEUKAEMIA
     Dosage: 45 MILLIGRAM, QD
     Route: 048
     Dates: start: 20201214

REACTIONS (9)
  - Constipation [Not Recovered/Not Resolved]
  - Sleep disorder [Unknown]
  - Gastric disorder [Unknown]
  - Dyschezia [Unknown]
  - Pain in extremity [Recovering/Resolving]
  - Intestinal transit time abnormal [Unknown]
  - Musculoskeletal pain [Recovering/Resolving]
  - Back pain [Recovering/Resolving]
  - Cardiovascular disorder [Unknown]

NARRATIVE: CASE EVENT DATE: 20201217
